FAERS Safety Report 7170726-8 (Version None)
Quarter: 2010Q4

REPORT INFORMATION
  Report Type: 
  Country: None (occurrence: None)
  Receive Date: 20101206
  Receipt Date: 20101120
  Transmission Date: 20110411
  Serious: No
  Sender: FDA-Public Use
  Company Number: US-1183880

PATIENT
  Age: 73 Year
  Sex: Female
  Weight: 99.7913 kg

DRUGS (13)
  1. SYSTANE EYE DROPS [Suspect]
     Indication: DRY EYE
     Dosage: 1 GTT OU,  TWO OR THREE TIMES A DAY, AS NEEDED OPHTHALMIC
     Route: 047
     Dates: start: 20100801, end: 20101027
  2. SYSTANE EYE DROPS [Suspect]
     Indication: EYE IRRITATION
     Dosage: 1 GTT OU,  TWO OR THREE TIMES A DAY, AS NEEDED OPHTHALMIC
     Route: 047
     Dates: start: 20100801, end: 20101027
  3. SYSTANE EYE DROPS [Suspect]
     Indication: EYE PAIN
     Dosage: 1 GTT OU,  TWO OR THREE TIMES A DAY, AS NEEDED OPHTHALMIC
     Route: 047
     Dates: start: 20100801, end: 20101027
  4. COSOPT [Concomitant]
  5. ALPHAGAN [Concomitant]
  6. LUMIGAN [Concomitant]
  7. DIOVAN [Concomitant]
  8. RAMIPRIL [Concomitant]
  9. ISRADIPINE [Concomitant]
  10. ACTONEL [Concomitant]
  11. HUMALOG [Concomitant]
  12. LIPITOR [Concomitant]
  13. CLONIDINE [Concomitant]

REACTIONS (2)
  - VISION BLURRED [None]
  - VISUAL ACUITY REDUCED [None]
